FAERS Safety Report 24567795 (Version 1)
Quarter: 2024Q4

REPORT INFORMATION
  Report Type: Spontaneous
  Country: DE (occurrence: DE)
  Receive Date: 20241031
  Receipt Date: 20241031
  Transmission Date: 20250115
  Serious: Yes (Other)
  Sender: REGENERON
  Company Number: DE-BAYER-2024A153876

PATIENT
  Age: 87 Year
  Sex: Male

DRUGS (1)
  1. EYLEA HD [Suspect]
     Active Substance: AFLIBERCEPT
     Indication: Product used for unknown indication
     Dosage: UNK, SOLUTION FOR INJECTION, 114.3 MG/ML

REACTIONS (4)
  - Retinal oedema [Unknown]
  - Subretinal fluid [Unknown]
  - Detachment of retinal pigment epithelium [Unknown]
  - General physical health deterioration [Unknown]
